FAERS Safety Report 17235426 (Version 1)
Quarter: 2020Q1

REPORT INFORMATION
  Report Type: Spontaneous
  Country: US (occurrence: US)
  Receive Date: 20200103
  Receipt Date: 20200103
  Transmission Date: 20200409
  Serious: No
  Sender: FDA-Public Use
  Company Number: None

PATIENT
  Age: 63 Year
  Sex: Female
  Weight: 87.75 kg

DRUGS (12)
  1. POTASSIUM CL 10 MEQ ER [Concomitant]
  2. MONTELUKAST [Concomitant]
     Active Substance: MONTELUKAST SODIUM
  3. BUPRENORPHINE TRANSDERMAL SYSTEM 10 MCG/HOUR [Concomitant]
     Active Substance: BUPRENORPHINE
  4. FUROSEMIDE 20MG [Concomitant]
     Active Substance: FUROSEMIDE
  5. HYDOCODONE/ACETAMINOPHEN 5-325 [Concomitant]
  6. ZYRTEC [Concomitant]
     Active Substance: CETIRIZINE HYDROCHLORIDE
  7. BUPRENORPHINE TRANSDERMAL SYSTEM 10 MCG/HOUR [Suspect]
     Active Substance: BUPRENORPHINE
     Indication: PAIN
     Dosage: ?          OTHER STRENGTH:10 MCG/HOUR;OTHER FREQUENCY:WEEKLY;?
     Route: 062
     Dates: start: 20191103, end: 20191201
  8. VITAMIN D3 [Concomitant]
     Active Substance: CHOLECALCIFEROL
  9. METOPROLOL ER [Concomitant]
     Active Substance: METOPROLOL SUCCINATE
  10. SUCCINATE 25MG [Concomitant]
  11. MULTIVITAMIN [Concomitant]
     Active Substance: VITAMINS
  12. PANTOPRAZOLE 40MG [Concomitant]
     Active Substance: PANTOPRAZOLE SODIUM

REACTIONS (5)
  - Inadequate analgesia [None]
  - Product packaging difficult to open [None]
  - Product substitution issue [None]
  - Rash [None]
  - Product use complaint [None]

NARRATIVE: CASE EVENT DATE: 20191115
